FAERS Safety Report 5753118-5 (Version None)
Quarter: 2008Q2

REPORT INFORMATION
  Report Type: 
  Country: None (occurrence: None)
  Receive Date: 20080530
  Receipt Date: 20080526
  Transmission Date: 20081010
  Serious: Yes (Death, Other)
  Sender: FDA-Public Use
  Company Number: CA-BAYER-200818807GPV

PATIENT

DRUGS (19)
  1. APROTININ [Suspect]
     Indication: POST PROCEDURAL HAEMORRHAGE
     Route: 042
  2. APROTININ [Suspect]
     Route: 042
  3. APROTININ [Suspect]
     Route: 042
  4. APROTININ [Suspect]
     Route: 042
  5. DIGITALIS TAB [Concomitant]
     Indication: CARDIAC DISORDER
  6. ACE INHIBITOR [Concomitant]
     Indication: CARDIAC DISORDER
  7. NITRATES [Concomitant]
     Indication: CARDIAC DISORDER
  8. BETA-BLOCKER [Concomitant]
     Indication: CARDIAC DISORDER
  9. DIURETICS [Concomitant]
     Indication: CARDIAC DISORDER
  10. ANTIARRHYTHMIC AGENTS [Concomitant]
     Indication: CARDIAC DISORDER
  11. HEPARIN [Concomitant]
     Indication: ANTICOAGULANT THERAPY
  12. WARFARIN SODIUM [Concomitant]
     Indication: ANTICOAGULANT THERAPY
  13. ANTICOAGULANT [Concomitant]
     Indication: ANTICOAGULANT THERAPY
  14. ASPIRIN [Concomitant]
     Indication: ANTIPLATELET THERAPY
  15. GLYCOPROTEIN IIA/IIIB RECEPTOR INHIBITOR [Concomitant]
     Indication: ANTIPLATELET THERAPY
  16. OTHER ANTIPLATELET AGENT [Concomitant]
     Indication: ANTIPLATELET THERAPY
  17. TISSUE PLASMINOGEN ACTIVATOR [Concomitant]
     Indication: THROMBOLYSIS
  18. STREPTOKINASE [Concomitant]
     Indication: THROMBOLYSIS
  19. OTHER THROMBOLYTIC AGENT [Concomitant]
     Indication: THROMBOLYSIS

REACTIONS (16)
  - CARDIAC FAILURE CONGESTIVE [None]
  - CARDIOGENIC SHOCK [None]
  - CEREBROVASCULAR ACCIDENT [None]
  - DEATH [None]
  - DEEP VEIN THROMBOSIS [None]
  - DIALYSIS [None]
  - MULTI-ORGAN FAILURE [None]
  - MYOCARDIAL INFARCTION [None]
  - POST PROCEDURAL HAEMORRHAGE [None]
  - PULMONARY EMBOLISM [None]
  - RENAL FAILURE [None]
  - RESPIRATORY FAILURE [None]
  - RIGHT VENTRICULAR FAILURE [None]
  - SEPSIS [None]
  - SURGICAL PROCEDURE REPEATED [None]
  - VENTRICULAR FAILURE [None]
